FAERS Safety Report 4304136-5 (Version None)
Quarter: 2004Q1

REPORT INFORMATION
  Report Type: 
  Country: None (occurrence: None)
  Receive Date: 20040224
  Receipt Date: 20040212
  Transmission Date: 20041129
  Serious: No
  Sender: FDA-Public Use
  Company Number: 04P-143-0250521-00

PATIENT
  Age: 43 Year
  Sex: Female
  Weight: 63 kg

DRUGS (3)
  1. BIAXIN [Suspect]
     Dosage: INTRAVENOUS
     Route: 042
  2. MEFENAMIC ACID [Concomitant]
  3. PARACLEAR WITH CODEINE [Concomitant]

REACTIONS (4)
  - AGGRESSION [None]
  - CONFUSIONAL STATE [None]
  - DYSPHONIA [None]
  - INCOHERENT [None]
